FAERS Safety Report 6125633-6 (Version None)
Quarter: 2009Q1

REPORT INFORMATION
  Report Type: 
  Country: None (occurrence: None)
  Receive Date: 20090320
  Receipt Date: 20090308
  Transmission Date: 20090719
  Serious: Yes (Hospitalization)
  Sender: FDA-Public Use
  Company Number: US-RB-012186-09

PATIENT
  Age: 70 Year
  Sex: Male

DRUGS (7)
  1. MUCINEX DM [Suspect]
     Dosage: ON AND OFF FOR ABOUT 3 WEEKS (UNSPECIFIED)
     Route: 048
     Dates: start: 20090201
  2. MUCINEX DM [Suspect]
     Indication: NASAL CONGESTION
     Route: 048
     Dates: start: 20090306
  3. MUCINEX DM [Suspect]
     Dosage: ON AND OFF FOR ABOUT 3 WEEKS (UNSPECIFIED)
     Route: 048
     Dates: start: 20090201
  4. PLAVIX [Concomitant]
  5. NOVOLOG INSULIN PEN [Concomitant]
     Dosage: 14 UNITS 3 TIMES A DAY
  6. HYDRALAZINE HCL [Concomitant]
  7. ISOSORBIDE [Concomitant]

REACTIONS (2)
  - BLOOD ELECTROLYTES DECREASED [None]
  - SYNCOPE [None]
